FAERS Safety Report 10687215 (Version 1)
Quarter: 2015Q1

REPORT INFORMATION
  Report Type: Not Available
  Country: US (occurrence: US)
  Receive Date: 20150102
  Receipt Date: 20150102
  Transmission Date: 20150720
  Serious: No
  Sender: FDA-Public Use
  Company Number: US-LUPIN PHARMACEUTICALS INC.-E2B_00002686

PATIENT
  Age: 58 Year
  Sex: Male
  Weight: 77.18 kg

DRUGS (1)
  1. ESZOPICLONE TABLETS 3 MG [Suspect]
     Active Substance: ESZOPICLONE
     Indication: INSOMNIA
     Dates: start: 201403

REACTIONS (2)
  - Drug ineffective [Unknown]
  - Insomnia [Not Recovered/Not Resolved]

NARRATIVE: CASE EVENT DATE: 20141024
